FAERS Safety Report 5136322-9 (Version None)
Quarter: 2006Q4

REPORT INFORMATION
  Report Type: 
  Country: None (occurrence: None)
  Receive Date: 20061027
  Receipt Date: 20061020
  Transmission Date: 20070319
  Serious: Yes (Life-Threatening, Hospitalization)
  Sender: FDA-Public Use
  Company Number: RU-GLAXOSMITHKLINE-B0443886A

PATIENT
  Age: 71 Year
  Sex: Female
  Weight: 69 kg

DRUGS (2)
  1. HYCAMTIN [Suspect]
     Indication: OVARIAN CANCER
     Dosage: 2.3MG PER DAY
     Route: 042
     Dates: start: 20060919, end: 20060924
  2. ONDANSETRON [Concomitant]
     Indication: NAUSEA
     Dosage: 8MG PER DAY
     Route: 042
     Dates: start: 20060919, end: 20060924

REACTIONS (8)
  - ANAEMIA [None]
  - ANOREXIA [None]
  - ASTHENIA [None]
  - BLOOD UREA INCREASED [None]
  - CONDITION AGGRAVATED [None]
  - DIARRHOEA [None]
  - NEPHROPATHY TOXIC [None]
  - PYREXIA [None]
